FAERS Safety Report 4566474-0 (Version None)
Quarter: 2005Q1

REPORT INFORMATION
  Report Type: 
  Country: None (occurrence: None)
  Receive Date: 20050128
  Receipt Date: 20050118
  Transmission Date: 20050727
  Serious: Yes (Other)
  Sender: FDA-Public Use
  Company Number: 21565

PATIENT
  Sex: Male
  Weight: 97 kg

DRUGS (1)
  1. NIASPAN [Suspect]

REACTIONS (1)
  - ANAPHYLACTIC REACTION [None]
